FAERS Safety Report 8172021-7 (Version None)
Quarter: 2012Q1

REPORT INFORMATION
  Report Type: 
  Country: None (occurrence: None)
  Receive Date: 20120228
  Receipt Date: 20120220
  Transmission Date: 20120608
  Serious: Yes (Life-Threatening, Hospitalization, Other)
  Sender: FDA-Public Use
  Company Number: PHHY2012GB014448

PATIENT
  Age: 62 Year
  Sex: Female

DRUGS (3)
  1. INDAPAMIDE [Suspect]
     Indication: HYPERTENSION
     Dosage: 2.5 MG, UNK
     Route: 048
     Dates: start: 20120125, end: 20120201
  2. ROSUVASTATIN [Concomitant]
  3. VALSARTAN [Concomitant]

REACTIONS (3)
  - CONFUSIONAL STATE [None]
  - BLOOD SODIUM DECREASED [None]
  - CONVULSION [None]
